FAERS Safety Report 5027436-2 (Version None)
Quarter: 2006Q2

REPORT INFORMATION
  Report Type: 
  Country: None (occurrence: None)
  Receive Date: 20060501
  Receipt Date: 20060123
  Transmission Date: 20061013
  Serious: No
  Sender: FDA-Public Use
  Company Number: 200610449BWH

PATIENT
  Age: 58 Year
  Sex: Male

DRUGS (2)
  1. NEXAVAR [Suspect]
     Indication: MESOTHELIOMA
     Dosage: 400 MG, BID, ORAL
     Route: 048
     Dates: start: 20060115, end: 20060123
  2. LORAZEPAM [Concomitant]

REACTIONS (2)
  - DYSPHONIA [None]
  - RASH PRURITIC [None]
